FAERS Safety Report 11758366 (Version 1)
Quarter: 2015Q4

REPORT INFORMATION
  Report Type: Spontaneous
  Country: US (occurrence: US)
  Receive Date: 20151120
  Receipt Date: 20151120
  Transmission Date: 20160304
  Serious: No
  Sender: FDA-Public Use
  Company Number: US-PFIZER INC-2015385988

PATIENT
  Age: 82 Year
  Sex: Female
  Weight: 95 kg

DRUGS (1)
  1. LYRICA [Suspect]
     Active Substance: PREGABALIN
     Indication: NEUROPATHY PERIPHERAL
     Dosage: 75 MG, 3X/DAY
     Route: 048

REACTIONS (5)
  - Burning sensation [Unknown]
  - Insomnia [Unknown]
  - Condition aggravated [Unknown]
  - Pain in extremity [Unknown]
  - Hypoaesthesia [Unknown]
